FAERS Safety Report 9790164 (Version 2)
Quarter: 2013Q4

REPORT INFORMATION
  Report Type: Spontaneous
  Country: US (occurrence: US)
  Receive Date: 20131231
  Receipt Date: 20131231
  Transmission Date: 20140711
  Serious: Yes (Hospitalization, Disabling, Other)
  Sender: FDA-Public Use
  Company Number: US-009507513-2011SP016571

PATIENT
  Sex: Female
  Weight: 56.25 kg

DRUGS (1)
  1. NUVARING [Suspect]
     Indication: PREMENSTRUAL SYNDROME
     Route: 067
     Dates: start: 20040421, end: 20061210

REACTIONS (12)
  - Pulmonary infarction [Unknown]
  - Deep vein thrombosis [Recovering/Resolving]
  - Pulmonary embolism [Unknown]
  - Inappropriate schedule of drug administration [Unknown]
  - Meniscus injury [Recovered/Resolved with Sequelae]
  - Hypoaesthesia [Unknown]
  - Muscle spasms [Unknown]
  - Breast mass [Not Recovered/Not Resolved]
  - Anxiety [Unknown]
  - Breast tenderness [Unknown]
  - Off label use [Unknown]
  - Local swelling [Recovered/Resolved]
